FAERS Safety Report 21172183 (Version 6)
Quarter: 2022Q4

REPORT INFORMATION
  Report Type: Report from Study
  Country: US (occurrence: US)
  Receive Date: 20220804
  Receipt Date: 20221212
  Transmission Date: 20230113
  Serious: No
  Sender: FDA-Public Use
  Company Number: US-NOVARTISTESTPH-NVSC2022US176241

PATIENT
  Age: 54 Year
  Sex: Male
  Weight: 117.93 kg

DRUGS (1)
  1. ENTRESTO [Suspect]
     Active Substance: SACUBITRIL\VALSARTAN
     Indication: Cardiac failure chronic
     Dosage: 1 DOSAGE FORM, BID (97/103 MG)
     Route: 048
     Dates: start: 202107

REACTIONS (11)
  - Fluid retention [Unknown]
  - Hypersomnia [Not Recovered/Not Resolved]
  - Amnesia [Unknown]
  - Myalgia [Unknown]
  - Hyperhidrosis [Recovering/Resolving]
  - Heart rate increased [Unknown]
  - Prostatic specific antigen increased [Unknown]
  - Fatigue [Recovering/Resolving]
  - Cough [Recovering/Resolving]
  - Drug ineffective [Recovering/Resolving]
  - Inappropriate schedule of product administration [Unknown]

NARRATIVE: CASE EVENT DATE: 20210701
